FAERS Safety Report 15488845 (Version 2)
Quarter: 2018Q4

REPORT INFORMATION
  Report Type: Report from Study
  Country: US (occurrence: US)
  Receive Date: 20181011
  Receipt Date: 20181024
  Transmission Date: 20190205
  Serious: Yes (Hospitalization)
  Sender: FDA-Public Use
  Company Number: US-TESARO-2018-TSO0880-US

PATIENT
  Sex: Female

DRUGS (2)
  1. ZEJULA [Suspect]
     Active Substance: NIRAPARIB
     Dosage: 200 MG, QPM, 2 CAPSULES BY MOUTH ONCE DAILY
     Route: 048
     Dates: start: 2018
  2. ZEJULA [Suspect]
     Active Substance: NIRAPARIB
     Indication: OVARIAN CANCER
     Dosage: 300 MG, QPM
     Route: 048
     Dates: start: 2018, end: 2018

REACTIONS (6)
  - Blood count abnormal [Unknown]
  - Drug intolerance [Unknown]
  - Ill-defined disorder [Recovered/Resolved]
  - Blood urine present [Recovered/Resolved]
  - Visual impairment [Unknown]
  - Gait inability [Unknown]

NARRATIVE: CASE EVENT DATE: 2018
